FAERS Safety Report 20489500 (Version 1)
Quarter: 2022Q1

REPORT INFORMATION
  Report Type: Spontaneous
  Country: CO (occurrence: CO)
  Receive Date: 20220218
  Receipt Date: 20220218
  Transmission Date: 20220423
  Serious: Yes (Hospitalization)
  Sender: FDA-Public Use
  Company Number: CO-PFIZER INC-202200262654

PATIENT
  Age: 90 Year
  Sex: Male

DRUGS (1)
  1. DOXAZOSIN MESYLATE [Suspect]
     Active Substance: DOXAZOSIN MESYLATE
     Indication: Benign prostatic hyperplasia
     Dosage: 4 MG, UNSPECIFIED FRECUENCY
     Route: 048
     Dates: start: 20200424

REACTIONS (3)
  - Abdominal adhesions [Unknown]
  - Cholecystitis [Unknown]
  - Nephrolithiasis [Unknown]

NARRATIVE: CASE EVENT DATE: 20211225
